FAERS Safety Report 6619253-4 (Version None)
Quarter: 2010Q1

REPORT INFORMATION
  Report Type: 
  Country: None (occurrence: None)
  Receive Date: 20100218
  Receipt Date: 20100205
  Transmission Date: 20100710
  Serious: Yes (Hospitalization)
  Sender: FDA-Public Use
  Company Number: 2010022029

PATIENT
  Age: 80 Year
  Sex: Female

DRUGS (14)
  1. PRIVIGEN [Suspect]
     Indication: IDIOPATHIC THROMBOCYTOPENIC PURPURA
     Dosage: SEE IMAGE
     Route: 042
     Dates: start: 20100122, end: 20100122
  2. PRIVIGEN [Suspect]
     Indication: IDIOPATHIC THROMBOCYTOPENIC PURPURA
     Dosage: SEE IMAGE
     Route: 042
     Dates: start: 20100122, end: 20100122
  3. PRIVIGEN [Suspect]
     Indication: IDIOPATHIC THROMBOCYTOPENIC PURPURA
     Dosage: SEE IMAGE
     Route: 042
     Dates: start: 20100122, end: 20100122
  4. WARFARIN SODIUM [Concomitant]
  5. CALCIUM CITRATE W/VITAMIN D NOS (CALCIUM CITRATE W/VITAMIN D NOS) [Concomitant]
  6. DILTIAZEM BERK(DILTIAZEM HYDROCHLORIDE) [Concomitant]
  7. SYMBICORT [Concomitant]
  8. ESTRADIOL [Concomitant]
  9. FUROSEMIDE [Concomitant]
  10. LANSOPRAZOLE [Concomitant]
  11. LEVOTHYROXINE SODIUM [Concomitant]
  12. SINGULAIR /01362601/ (MONTELUKAST) [Concomitant]
  13. OXYBUTYNIN CHLORIDE [Concomitant]
  14. TRIMETHOPRIM [Concomitant]

REACTIONS (7)
  - ATROPHY [None]
  - BURNING SENSATION [None]
  - CHILLS [None]
  - INTERNATIONAL NORMALISED RATIO INCREASED [None]
  - LEUKOARAIOSIS [None]
  - MENINGITIS ASEPTIC [None]
  - PHOTOSENSITIVITY REACTION [None]
